FAERS Safety Report 4513462-6 (Version None)
Quarter: 2004Q4

REPORT INFORMATION
  Report Type: 
  Country: None (occurrence: None)
  Receive Date: 20041130
  Receipt Date: 20041027
  Transmission Date: 20050328
  Serious: No
  Sender: FDA-Public Use
  Company Number: US-BRISTOL-MYERS SQUIBB COMPANY-12748372

PATIENT
  Sex: Female

DRUGS (5)
  1. ERBITUX [Suspect]
     Indication: COLORECTAL CANCER METASTATIC
     Dosage: LOAD DOSE 19-OCT (400 MG/M2), 2ND DOSE 26-OCT (250 MG/M2)
     Dates: start: 20041001, end: 20041001
  2. BENADRYL [Concomitant]
     Indication: PREMEDICATION
     Dates: start: 20041001, end: 20041001
  3. TAGAMET [Concomitant]
     Indication: PREMEDICATION
     Dates: start: 20041001, end: 20041001
  4. TYLENOL (CAPLET) [Concomitant]
     Indication: PREMEDICATION
     Dosage: DOSAGE FORM = 1 TABLET
     Dates: start: 20041001, end: 20041001
  5. IRINOTECAN [Concomitant]
     Dosage: STOPPED ON 12-OCT-2004
     Dates: end: 20041012

REACTIONS (2)
  - EYE REDNESS [None]
  - RASH [None]
